FAERS Safety Report 9867866 (Version 2)
Quarter: 2014Q1

REPORT INFORMATION
  Report Type: Report from Study
  Country: GB (occurrence: GB)
  Receive Date: 20140204
  Receipt Date: 20140204
  Transmission Date: 20141002
  Serious: Yes (Life-Threatening, Hospitalization, Disabling, Other)
  Sender: FDA-Public Use
  Company Number: GB-SANOFI-AVENTIS-2012SA007857

PATIENT
  Age: 37 Year
  Sex: Female
  Weight: 61.3 kg

DRUGS (5)
  1. TERIFLUNOMIDE [Suspect]
     Indication: MULTIPLE SCLEROSIS RELAPSE
     Route: 048
     Dates: start: 20080704, end: 201201
  2. GABAPENTIN [Concomitant]
     Indication: PAIN
     Route: 048
  3. AMITRIPTILINE [Concomitant]
     Indication: PAIN
     Route: 048
  4. NIFEDIPINE [Concomitant]
     Indication: RAYNAUD^S PHENOMENON
     Route: 048
  5. SENOKOT-S [Concomitant]
     Indication: CONSTIPATION
     Dosage: DOSE:5 UNIT(S)
     Route: 048

REACTIONS (2)
  - Sepsis [Recovered/Resolved with Sequelae]
  - Arthropathy [Recovered/Resolved with Sequelae]
